FAERS Safety Report 8306607-3 (Version None)
Quarter: 2012Q1

REPORT INFORMATION
  Report Type: 
  Country: None (occurrence: None)
  Receive Date: 20120327
  Receipt Date: 20100521
  Transmission Date: 20120608
  Serious: Yes (Other)
  Sender: FDA-Public Use
  Company Number: PHEH2009US17138

PATIENT
  Age: 74 Year
  Sex: Male
  Weight: 103.4 kg

DRUGS (10)
  1. PHENERGAN ^AVENTIS PHARMA^ (PROMETHAZINE HYDROCHLORIDE) [Concomitant]
  2. LOPRESSOR [Concomitant]
  3. DEMADEX [Concomitant]
  4. GLEEVEC [Suspect]
     Indication: CHRONIC MYELOID LEUKAEMIA
     Dosage: 400 MG, QD, ORAL
     Route: 048
     Dates: start: 20081001
  5. ASPIRIN [Concomitant]
  6. PHENERGAN ^AVENTIS PHARMA^ (PROMETHAZINE HYDROCHLORIDE) [Concomitant]
  7. NEVANAC (NEPAFENAC) [Concomitant]
  8. LOPRESSOR [Concomitant]
  9. COUMADIN [Concomitant]
  10. ZOCOR [Concomitant]

REACTIONS (2)
  - MUSCLE SPASMS [None]
  - HERPES ZOSTER [None]
